FAERS Safety Report 4582525-1 (Version None)
Quarter: 2005Q1

REPORT INFORMATION
  Report Type: 
  Country: None (occurrence: None)
  Receive Date: 20050211
  Receipt Date: 20050211
  Transmission Date: 20050727
  Serious: Yes (Hospitalization)
  Sender: FDA-Public Use
  Company Number: None

PATIENT
  Sex: Male
  Weight: 9.8 kg

DRUGS (2)
  1. SYNAGIS [Suspect]
     Indication: PROPHYLAXIS
     Dates: start: 20050101
  2. SYNAGIS [Suspect]
     Indication: RESPIRATORY SYNCYTIAL VIRUS INFECTION
     Dates: start: 20050101

REACTIONS (6)
  - BODY TEMPERATURE INCREASED [None]
  - CONTUSION [None]
  - ERYTHEMA [None]
  - PRURITUS [None]
  - RASH GENERALISED [None]
  - UPPER RESPIRATORY TRACT INFECTION [None]
